FAERS Safety Report 6087338-X (Version None)
Quarter: 2009Q1

REPORT INFORMATION
  Report Type: 
  Country: None (occurrence: None)
  Receive Date: 20090223
  Receipt Date: 20090216
  Transmission Date: 20090719
  Serious: Yes (Other)
  Sender: FDA-Public Use
  Company Number: B0556072A

PATIENT
  Sex: Female

DRUGS (3)
  1. TYKERB [Suspect]
     Dosage: 1200MG PER DAY
     Route: 065
     Dates: start: 20080401
  2. XELODA [Suspect]
     Indication: DRUG USE FOR UNKNOWN INDICATION
     Dosage: 1G TWICE PER DAY
     Route: 065
     Dates: end: 20090109
  3. KEPPRA [Suspect]
     Dosage: 1.5G TWICE PER DAY

REACTIONS (2)
  - ERYTHEMA [None]
  - NAIL DISORDER [None]
